FAERS Safety Report 22056074 (Version 1)
Quarter: 2023Q1

REPORT INFORMATION
  Report Type: Spontaneous
  Country: GB (occurrence: CH)
  Receive Date: 20230302
  Receipt Date: 20230302
  Transmission Date: 20230418
  Serious: Yes (Hospitalization, Other)
  Sender: FDA-Public Use
  Company Number: GB-VERTEX PHARMACEUTICALS-2023-002934

PATIENT
  Age: 9 Year
  Sex: Male
  Weight: 25 kg

DRUGS (2)
  1. TRIKAFTA [Suspect]
     Active Substance: ELEXACAFTOR\IVACAFTOR\TEZACAFTOR
     Indication: Cystic fibrosis
     Dosage: 200MG ELEXA/100MG TEZA/150MG IVA AND 150MG IVA AT UNK FREQ.
     Route: 048
     Dates: start: 202208
  2. TRIKAFTA [Suspect]
     Active Substance: ELEXACAFTOR\IVACAFTOR\TEZACAFTOR
     Dosage: 100MG ELEXA/50MG TEZA/75MG IVA AND 75MG IVA AT UNK FREQ
     Route: 048

REACTIONS (4)
  - Idiopathic intracranial hypertension [Unknown]
  - Distal intestinal obstruction syndrome [Unknown]
  - VIth nerve paralysis [Not Recovered/Not Resolved]
  - Vitamin A increased [Unknown]

NARRATIVE: CASE EVENT DATE: 20220801
